FAERS Safety Report 5203605-3 (Version None)
Quarter: 2007Q1

REPORT INFORMATION
  Report Type: 
  Country: None (occurrence: None)
  Receive Date: 20070110
  Receipt Date: 20070108
  Transmission Date: 20070707
  Serious: Yes (Hospitalization)
  Sender: FDA-Public Use
  Company Number: US-BRISTOL-MYERS SQUIBB COMPANY-13635495

PATIENT

DRUGS (1)
  1. DEFINITY [Suspect]

REACTIONS (2)
  - BACK PAIN [None]
  - CONVULSION [None]
